FAERS Safety Report 12228574 (Version 1)
Quarter: 2016Q1

REPORT INFORMATION
  Report Type: Spontaneous
  Country: US (occurrence: None)
  Receive Date: 20160330
  Receipt Date: 20160330
  Transmission Date: 20160526
  Serious: Yes (Hospitalization)
  Sender: FDA-Public Use
  Company Number: None

PATIENT
  Age: 56 Year
  Sex: Male
  Weight: 108.9 kg

DRUGS (23)
  1. METHYLPREDNISOLONE (PF) (SOLU-MEDROL) [Concomitant]
  2. SODIUM CHLORIDE FLUSH SYRINGE [Concomitant]
  3. LIPITOR [Concomitant]
     Active Substance: ATORVASTATIN CALCIUM
  4. ALBUTEROL (PROAIR HFA) [Concomitant]
  5. PAROXETINE (PAXIL) [Concomitant]
  6. LASIX [Concomitant]
     Active Substance: FUROSEMIDE
  7. ADULT LOW DOSE ASPIRIN [Concomitant]
     Active Substance: ASPIRIN
  8. SENNOSIDES-DOCUSATE SODIUM (PERI-COLACE) [Concomitant]
  9. AMOXICILLIN (AMOXIL) [Concomitant]
  10. FOLIC ACID/MULTIVITS-MIN/LUT (CENTRUM SILVER ORAL) [Concomitant]
  11. ALBUTEROL-IPRATROPIUM (DUONEB) [Concomitant]
  12. ALKALINE SALINE MOUTHWASH [Concomitant]
  13. PAROXETINE (PAXIL) [Concomitant]
  14. MIRALAX [Concomitant]
     Active Substance: POLYETHYLENE GLYCOL 3350
  15. METOPROLOL (LOPRESSOR) [Concomitant]
  16. PEMBROLIZUMAB, 100 MG/ 4ML [Suspect]
     Active Substance: PEMBROLIZUMAB
     Indication: MESOTHELIOMA
     Route: 041
     Dates: start: 20151204, end: 20160316
  17. MORPHINE-SR (ORAMORPH) [Concomitant]
  18. LYRICA [Concomitant]
     Active Substance: PREGABALIN
  19. MORPHINE-SR (ORAMORPH) [Concomitant]
  20. LORAZEPAM (ATIVAN) [Concomitant]
  21. HYDROCODONE-ACETAMINOPHEN (NORCO) [Concomitant]
  22. VECURONIUM (NORCURON) [Concomitant]
  23. LIPITOR [Concomitant]
     Active Substance: ATORVASTATIN CALCIUM

REACTIONS (1)
  - Pneumonitis [None]

NARRATIVE: CASE EVENT DATE: 20160328
